FAERS Safety Report 25162532 (Version 4)
Quarter: 2025Q2

REPORT INFORMATION
  Report Type: Report from Study
  Country: CO (occurrence: CO)
  Receive Date: 20250404
  Receipt Date: 20250613
  Transmission Date: 20250716
  Serious: Yes (Hospitalization)
  Sender: ESTEVE
  Company Number: CO-ESTEVE-2025-00612

PATIENT
  Age: 52 Year
  Sex: Female
  Weight: 62 kg

DRUGS (13)
  1. METOPIRONE [Suspect]
     Active Substance: METYRAPONE
     Indication: Cushing^s syndrome
  2. METYRAPONE [Suspect]
     Active Substance: METYRAPONE
  3. AMLODIPINE [Suspect]
     Active Substance: AMLODIPINE BESYLATE
  4. SPIRONOLACTONE [Suspect]
     Active Substance: SPIRONOLACTONE
  5. EMPAGLIFLOZIN [Concomitant]
     Active Substance: EMPAGLIFLOZIN
  6. ENOXAPARIN SODIUM [Concomitant]
     Active Substance: ENOXAPARIN SODIUM
  7. AMOXICILLIN AND CLAVULANATE POTASSIUM [Concomitant]
     Active Substance: AMOXICILLIN\CLAVULANATE POTASSIUM
  8. METOCLOPRAMIDE [Suspect]
     Active Substance: METOCLOPRAMIDE
  9. AMLODIPINE [Suspect]
     Active Substance: AMLODIPINE BESYLATE
  10. ATORVASTATIN CALCIUM [Suspect]
     Active Substance: ATORVASTATIN CALCIUM
  11. SPIRONOLACTONE [Suspect]
     Active Substance: SPIRONOLACTONE
  12. KETOCONAZOLE [Suspect]
     Active Substance: KETOCONAZOLE
  13. LOSARTAN [Suspect]
     Active Substance: LOSARTAN

REACTIONS (4)
  - Infection [Recovered/Resolved]
  - Intentional dose omission [Unknown]
  - Vomiting [Recovered/Resolved]
  - Seizure [Recovered/Resolved]

NARRATIVE: CASE EVENT DATE: 20250223
